FAERS Safety Report 7331569-5 (Version None)
Quarter: 2011Q1

REPORT INFORMATION
  Report Type: 
  Country: None (occurrence: None)
  Receive Date: 20110228
  Receipt Date: 20110228
  Transmission Date: 20110831
  Serious: Yes (Hospitalization)
  Sender: FDA-Public Use
  Company Number: None

PATIENT
  Sex: Female
  Weight: 54 kg

DRUGS (17)
  1. FERROUS GLUCONATE [Concomitant]
  2. ACETAMINOPHEN [Concomitant]
  3. STAVELO [Concomitant]
  4. ACTONEL [Concomitant]
  5. MULTI-VITAMINS [Concomitant]
  6. K-DUR [Concomitant]
  7. HI-CAL SUPPLEMENT [Concomitant]
  8. DULCOLAX SUPP [Concomitant]
  9. MOM [Concomitant]
  10. PRADAXA [Suspect]
     Indication: VENOUS INSUFFICIENCY
     Dosage: 150 MG BID PO
     Route: 048
     Dates: start: 20110215, end: 20110219
  11. DETROL LA [Concomitant]
  12. DIGOXIN [Concomitant]
  13. REQUIP [Concomitant]
  14. COLACE [Concomitant]
  15. SYNTHROID [Concomitant]
  16. TOPROL-XL [Concomitant]
  17. NORCO [Concomitant]

REACTIONS (3)
  - GASTROINTESTINAL HAEMORRHAGE [None]
  - NODAL RHYTHM [None]
  - BRADYCARDIA [None]
